FAERS Safety Report 21991801 (Version 2)
Quarter: 2023Q1

REPORT INFORMATION
  Report Type: Spontaneous
  Country: JP (occurrence: JP)
  Receive Date: 20230214
  Receipt Date: 20230222
  Transmission Date: 20230417
  Serious: Yes (Other)
  Sender: FDA-Public Use
  Company Number: JP-GUERBETG_JAPAN-JP-20230012

PATIENT
  Age: 81 Year
  Sex: Male

DRUGS (2)
  1. LIPIODOL [Suspect]
     Active Substance: ETHIODIZED OIL
     Indication: Transcatheter arterial chemoembolisation
     Route: 013
     Dates: start: 20230116, end: 20230116
  2. EPIRUBICIN [Concomitant]
     Active Substance: EPIRUBICIN
     Indication: Transcatheter arterial chemoembolisation
     Route: 013
     Dates: start: 20230116, end: 20230116

REACTIONS (2)
  - Diaphragmatic paralysis [Recovering/Resolving]
  - Post procedural pulmonary embolism [Unknown]

NARRATIVE: CASE EVENT DATE: 20230131
